FAERS Safety Report 17819958 (Version 1)
Quarter: 2020Q2

REPORT INFORMATION
  Report Type: Spontaneous
  Country: GB (occurrence: GB)
  Receive Date: 20200525
  Receipt Date: 20200525
  Transmission Date: 20200714
  Serious: Yes (Other)
  Sender: FDA-Public Use
  Company Number: GB-AUROBINDO-AUR-APL-2020-024935

PATIENT
  Age: 29 Year
  Sex: Female
  Weight: 75 kg

DRUGS (5)
  1. BETAMETHASONE. [Concomitant]
     Active Substance: BETAMETHASONE
     Indication: PRODUCT USED FOR UNKNOWN INDICATION
     Dosage: UNK
     Route: 065
  2. DULOXETINE. [Suspect]
     Active Substance: DULOXETINE
     Indication: PAIN
     Dosage: 120 MILLIGRAM, ONCE A DAY
     Route: 048
     Dates: start: 20200123, end: 20200416
  3. CLIOQUINOL [Concomitant]
     Active Substance: CLIOQUINOL
     Indication: PRODUCT USED FOR UNKNOWN INDICATION
     Dosage: UNK
     Route: 065
  4. AMITRIPTYLINE HYDROCHLORIDE. [Concomitant]
     Active Substance: AMITRIPTYLINE HYDROCHLORIDE
     Indication: PRODUCT USED FOR UNKNOWN INDICATION
     Dosage: 1 DOSAGE FORM, ONCE A DAY, AT NIGHT
     Route: 065
     Dates: start: 20200424
  5. DULOXETINE. [Suspect]
     Active Substance: DULOXETINE
     Dosage: 30 MILLIGRAM
     Route: 048
     Dates: start: 20200123, end: 20200416

REACTIONS (3)
  - Cutaneous vasculitis [Recovering/Resolving]
  - Petechiae [Unknown]
  - Contusion [Unknown]

NARRATIVE: CASE EVENT DATE: 202001
